FAERS Safety Report 13738367 (Version 2)
Quarter: 2017Q3

REPORT INFORMATION
  Report Type: Spontaneous
  Country: CH (occurrence: CH)
  Receive Date: 20170710
  Receipt Date: 20170720
  Transmission Date: 20171127
  Serious: Yes (Hospitalization)
  Sender: FDA-Public Use
  Company Number: CH-PFIZER INC-2017295632

PATIENT
  Age: 74 Year
  Sex: Female
  Weight: 69 kg

DRUGS (4)
  1. TEMESTA EXPIDET [Suspect]
     Active Substance: LORAZEPAM
     Indication: SLEEP DISORDER
     Dosage: 2.5 MG, UNK (TAKEN AGAIN FOR THE FIRST TIME SINCE A YEAR)
     Dates: start: 20170413
  2. VALIUM [Concomitant]
     Active Substance: DIAZEPAM
     Indication: BACK PAIN
     Dosage: UNK UNK, ONCE MONTHLY
  3. TEMESTA EXPIDET [Suspect]
     Active Substance: LORAZEPAM
     Dosage: UNK, AS NEEDED (SHE HAD BEEN TAKING TESTESTA-EXPIDET FOR A LONG TIME AS NEEDED)
  4. ASPIRIN CARDIO [Concomitant]
     Active Substance: ASPIRIN
     Indication: CORONARY ARTERY DISEASE
     Dosage: 100 MG, 1X/DAY
     Route: 048

REACTIONS (3)
  - Gait disturbance [Recovered/Resolved]
  - Confusional state [Recovered/Resolved]
  - Speech disorder [Recovered/Resolved]

NARRATIVE: CASE EVENT DATE: 20170414
